FAERS Safety Report 10307398 (Version 1)
Quarter: 2014Q3

REPORT INFORMATION
  Report Type: Spontaneous
  Country: US (occurrence: None)
  Receive Date: 20140714
  Receipt Date: 20140714
  Transmission Date: 20150326
  Serious: Yes (Life-Threatening, Hospitalization)
  Sender: FDA-Public Use
  Company Number: None

PATIENT
  Age: 83 Year
  Sex: Male
  Weight: 69.85 kg

DRUGS (1)
  1. PROLIA [Suspect]
     Active Substance: DENOSUMAB
     Indication: PROSTATE CANCER
     Dates: start: 20140630

REACTIONS (10)
  - Chills [None]
  - Eye swelling [None]
  - Fall [None]
  - Rash [None]
  - Swollen tongue [None]
  - Local swelling [None]
  - Asthenia [None]
  - Urticaria [None]
  - Lip swelling [None]
  - Pyrexia [None]

NARRATIVE: CASE EVENT DATE: 20140709
